FAERS Safety Report 8122041-3 (Version None)
Quarter: 2012Q1

REPORT INFORMATION
  Report Type: 
  Country: None (occurrence: None)
  Receive Date: 20120208
  Receipt Date: 20120128
  Transmission Date: 20120608
  Serious: Yes (Hospitalization)
  Sender: FDA-Public Use
  Company Number: US-BAYER-2011-040590

PATIENT
  Age: 27 Year
  Sex: Female
  Weight: 74.83 kg

DRUGS (4)
  1. BEXTRA [Concomitant]
     Indication: ARTHRALGIA
     Dosage: UNK
     Dates: start: 20020809
  2. POTASSIUM [Concomitant]
     Indication: BLOOD POTASSIUM DECREASED
     Dosage: UNK
     Dates: start: 20020809
  3. YASMIN [Suspect]
     Dosage: UNK
     Dates: start: 20020101, end: 20020801
  4. MEPROZINE [Concomitant]
     Indication: MIGRAINE
     Dosage: UNK
     Dates: start: 20020722

REACTIONS (6)
  - EMOTIONAL DISTRESS [None]
  - PAIN [None]
  - ANXIETY [None]
  - INJURY [None]
  - DEEP VEIN THROMBOSIS [None]
  - GENERAL PHYSICAL HEALTH DETERIORATION [None]
